FAERS Safety Report 22712151 (Version 6)
Quarter: 2023Q4

REPORT INFORMATION
  Report Type: Report from Study
  Country: CN (occurrence: CN)
  Receive Date: 20230717
  Receipt Date: 20231109
  Transmission Date: 20240110
  Serious: Yes (Hospitalization)
  Sender: FDA-Public Use
  Company Number: CN-PFIZER INC-PV202300122719

PATIENT
  Age: 70 Year
  Sex: Female
  Weight: 88 kg

DRUGS (11)
  1. EPIRUBICIN HYDROCHLORIDE [Suspect]
     Active Substance: EPIRUBICIN HYDROCHLORIDE
     Indication: Triple negative breast cancer
     Dosage: 90 MG/M2, 1 IN 2 WK
     Route: 042
     Dates: start: 20230323
  2. PACLITAXEL [Suspect]
     Active Substance: PACLITAXEL
     Indication: Triple negative breast cancer
     Dosage: 80 MG/M2, WEEKLY
     Route: 042
     Dates: start: 20221011
  3. CYCLOPHOSPHAMIDE [Suspect]
     Active Substance: CYCLOPHOSPHAMIDE
     Indication: Triple negative breast cancer
     Dosage: 600 MG/M2, 1 IN 2 WK
     Route: 042
     Dates: start: 20230323
  4. FILGRASTIM [Suspect]
     Active Substance: FILGRASTIM
     Indication: Triple negative breast cancer
     Dosage: 6 MG, 1 IN 2 WK, CYCLE 4 VISIT 1, INJECTION
     Route: 058
     Dates: start: 20230324, end: 20230324
  5. FILGRASTIM [Suspect]
     Active Substance: FILGRASTIM
     Dosage: 6 MG, 1 IN 2 WK, CYCLE 4 VISIT 2, INJECTION
     Route: 058
     Dates: start: 20230406, end: 20230406
  6. FILGRASTIM [Suspect]
     Active Substance: FILGRASTIM
     Dosage: 6 MG, 1 IN 2 WK, CYCLE 5 VISIT 1, INJECTION
     Route: 058
     Dates: start: 20230420, end: 20230420
  7. FILGRASTIM [Suspect]
     Active Substance: FILGRASTIM
     Dosage: 6 MG, 1 IN 2 WK, CYCLE 5 VISIT 2, INJECTION
     Route: 058
     Dates: start: 20230505, end: 20230505
  8. VITAMIN C [Concomitant]
     Active Substance: ASCORBIC ACID
     Dosage: 2 G, DAILY
     Route: 042
     Dates: start: 20230620, end: 20230622
  9. VITAMIN B6 [Concomitant]
     Active Substance: PYRIDOXINE HYDROCHLORIDE
     Dosage: 0.1 G
     Route: 042
     Dates: start: 20230620, end: 20230622
  10. POTASSIUM CHLORIDE [Concomitant]
     Active Substance: POTASSIUM CHLORIDE
     Indication: Hypokalaemia
     Dosage: 0.5 G, 2 IN 1 D
     Route: 048
     Dates: start: 20230620
  11. POTASSIUM CHLORIDE [Concomitant]
     Active Substance: POTASSIUM CHLORIDE
     Dosage: 0.5 G, 3 IN 1 D
     Route: 048
     Dates: start: 20230621, end: 20230627

REACTIONS (1)
  - Cardiac asthma [Recovering/Resolving]

NARRATIVE: CASE EVENT DATE: 20230613
